FAERS Safety Report 20758624 (Version 1)
Quarter: 2022Q2

REPORT INFORMATION
  Report Type: Spontaneous
  Country: US (occurrence: US)
  Receive Date: 20220427
  Receipt Date: 20220427
  Transmission Date: 20220721
  Serious: No
  Sender: FDA-Public Use
  Company Number: US-PFIZER INC-202101340600

PATIENT
  Age: 74 Year
  Sex: Female
  Weight: 58.51 kg

DRUGS (1)
  1. CHANTIX [Suspect]
     Active Substance: VARENICLINE TARTRATE
     Dosage: UNK

REACTIONS (4)
  - Nausea [Unknown]
  - Nerve block [Unknown]
  - Back pain [Unknown]
  - Recalled product administered [Unknown]
